FAERS Safety Report 24531231 (Version 1)
Quarter: 2024Q4

REPORT INFORMATION
  Report Type: Spontaneous
  Country: FR (occurrence: FR)
  Receive Date: 20241022
  Receipt Date: 20241022
  Transmission Date: 20250115
  Serious: Yes (Death)
  Sender: ALEXION PHARMACEUTICALS
  Company Number: None

PATIENT
  Age: 68 Year
  Weight: 64 kg

DRUGS (16)
  1. TICAGRELOR [Suspect]
     Active Substance: TICAGRELOR
     Indication: Ischaemic stroke
  2. TICAGRELOR [Suspect]
     Active Substance: TICAGRELOR
  3. TICAGRELOR [Suspect]
     Active Substance: TICAGRELOR
  4. TICAGRELOR [Suspect]
     Active Substance: TICAGRELOR
  5. ENOXAPARIN SODIUM [Suspect]
     Active Substance: ENOXAPARIN SODIUM
     Indication: Ischaemic stroke
     Dosage: 4000 INTERNATIONAL UNIT, QD
  6. ENOXAPARIN SODIUM [Suspect]
     Active Substance: ENOXAPARIN SODIUM
     Dosage: 4000 INTERNATIONAL UNIT, QD
  7. ENOXAPARIN SODIUM [Suspect]
     Active Substance: ENOXAPARIN SODIUM
     Dosage: 7000 INTERNATIONAL UNIT, Q12H
  8. ENOXAPARIN SODIUM [Suspect]
     Active Substance: ENOXAPARIN SODIUM
     Dosage: 7000 INTERNATIONAL UNIT, Q12H
  9. KARDEGIC [Suspect]
     Active Substance: ASPIRIN DL-LYSINE
     Indication: Ischaemic stroke
  10. KARDEGIC [Suspect]
     Active Substance: ASPIRIN DL-LYSINE
  11. LEVOTHYROXINE [Concomitant]
     Active Substance: LEVOTHYROXINE
     Indication: Thyroidectomy
  12. LEVOTHYROXINE [Concomitant]
     Active Substance: LEVOTHYROXINE
  13. ATORVASTATIN [Concomitant]
     Active Substance: ATORVASTATIN
     Indication: Cardiovascular event prophylaxis
  14. ATORVASTATIN [Concomitant]
     Active Substance: ATORVASTATIN
  15. ACETAMINOPHEN [Concomitant]
     Active Substance: ACETAMINOPHEN
     Indication: Back pain
  16. ACETAMINOPHEN [Concomitant]
     Active Substance: ACETAMINOPHEN

REACTIONS (1)
  - Gingival bleeding [Fatal]
